FAERS Safety Report 4463308-X (Version None)
Quarter: 2004Q3

REPORT INFORMATION
  Report Type: 
  Country: None (occurrence: None)
  Receive Date: 20040930
  Receipt Date: 20040825
  Transmission Date: 20050211
  Serious: No
  Sender: FDA-Public Use
  Company Number: US-BRISTOL-MYERS SQUIBB COMPANY-12684031

PATIENT
  Age: 44 Year
  Sex: Male

DRUGS (4)
  1. ATAZANAVIR [Suspect]
     Indication: HIV INFECTION
     Route: 048
     Dates: start: 20040209, end: 20040326
  2. RITONAVIR [Concomitant]
  3. COMBIVIR [Concomitant]
  4. TESTOSTERONE [Concomitant]

REACTIONS (4)
  - CHROMATURIA [None]
  - HYPERBILIRUBINAEMIA [None]
  - JAUNDICE [None]
  - URTICARIA [None]
